FAERS Safety Report 10027453 (Version 1)
Quarter: 2014Q1

REPORT INFORMATION
  Report Type: Spontaneous
  Country: US (occurrence: US)
  Receive Date: 20140321
  Receipt Date: 20140321
  Transmission Date: 20141002
  Serious: No
  Sender: FDA-Public Use
  Company Number: US-PFIZER INC-2014078281

PATIENT
  Sex: Male

DRUGS (1)
  1. ADVIL [Suspect]
     Dosage: UNK
     Dates: start: 2014

REACTIONS (5)
  - Abdominal discomfort [Unknown]
  - Dyspnoea [Unknown]
  - Throat irritation [Unknown]
  - Tooth disorder [Unknown]
  - Drug ineffective [Unknown]
